FAERS Safety Report 17823762 (Version 1)
Quarter: 2020Q2

REPORT INFORMATION
  Report Type: Spontaneous
  Country: US (occurrence: US)
  Receive Date: 20200526
  Receipt Date: 20200526
  Transmission Date: 20200714
  Serious: No
  Sender: FDA-Public Use
  Company Number: US-PFIZER INC-2020122460

PATIENT
  Age: 85 Year
  Sex: Male

DRUGS (2)
  1. LYRICA [Suspect]
     Active Substance: PREGABALIN
     Indication: NEURALGIA
  2. LYRICA [Suspect]
     Active Substance: PREGABALIN
     Indication: SCIATICA
     Dosage: 450 MG, DAILY (1 CAPSULE IN THE MORNING AND 2 CAPSULES IN THE EVENING)
     Route: 048

REACTIONS (2)
  - Hypoacusis [Unknown]
  - Frustration tolerance decreased [Unknown]
